FAERS Safety Report 15100090 (Version 1)
Quarter: 2018Q3

REPORT INFORMATION
  Report Type: Spontaneous
  Country: IT (occurrence: IT)
  Receive Date: 20180703
  Receipt Date: 20180703
  Transmission Date: 20181010
  Serious: Yes (Other)
  Sender: FDA-Public Use
  Company Number: IT-ALKEM LABORATORIES LIMITED-IT-ALKEM-2018-04683

PATIENT
  Age: 7 Year
  Sex: Male

DRUGS (5)
  1. BASILIXIMAB [Suspect]
     Active Substance: BASILIXIMAB
     Indication: IMMUNOSUPPRESSION
     Dosage: UNK
     Route: 065
  2. CYCLOSPORINE A [Suspect]
     Active Substance: CYCLOSPORINE
     Indication: IMMUNOSUPPRESSION
     Dosage: UNK
     Route: 065
  3. TACROLIMUS. [Suspect]
     Active Substance: TACROLIMUS
     Indication: IMMUNOSUPPRESSION
     Dosage: TITRATED TO ACHIEVE TROUGH LEVELS OF 8 TO 10 ?G/L
     Route: 065
  4. TACROLIMUS. [Suspect]
     Active Substance: TACROLIMUS
     Indication: GRAFT VERSUS HOST DISEASE
  5. MYCOPHENOLATE MOFETIL. [Suspect]
     Active Substance: MYCOPHENOLATE MOFETIL
     Indication: IMMUNOSUPPRESSION
     Dosage: 600 MG/M2, QD
     Route: 065

REACTIONS (4)
  - Transplant rejection [Unknown]
  - Drug ineffective [Unknown]
  - Cytomegalovirus infection [Unknown]
  - Bone marrow failure [Unknown]
